FAERS Safety Report 7906499-8 (Version None)
Quarter: 2011Q4

REPORT INFORMATION
  Report Type: 
  Country: None (occurrence: None)
  Receive Date: 20111110
  Receipt Date: 20111103
  Transmission Date: 20120403
  Serious: Yes (Hospitalization, Other)
  Sender: FDA-Public Use
  Company Number: AR-JNJFOC-20091206025

PATIENT
  Sex: Female
  Weight: 70.6 kg

DRUGS (13)
  1. CLONAZEPAM [Concomitant]
     Route: 048
     Dates: start: 20060201
  2. PANTAS [Concomitant]
     Route: 048
     Dates: start: 20090514
  3. GOLIMUMAB [Suspect]
     Route: 058
     Dates: start: 20091123
  4. EYE DROPS NOS [Concomitant]
     Route: 047
     Dates: start: 20060901
  5. ASCORBIC ACID [Concomitant]
     Route: 048
     Dates: start: 20070621
  6. METHOTREXATE [Suspect]
     Indication: RHEUMATOID ARTHRITIS
     Route: 048
  7. DICLOFENAC SODIUM [Concomitant]
     Route: 048
     Dates: start: 20070216
  8. ACIFOL [Concomitant]
     Route: 048
     Dates: start: 20070325
  9. GINSENG [Concomitant]
     Route: 048
     Dates: start: 20070621
  10. PLACEBO [Suspect]
     Indication: RHEUMATOID ARTHRITIS
     Route: 058
     Dates: start: 20070319
  11. RANITIDINA [Concomitant]
     Route: 048
     Dates: start: 20060201
  12. GOLIMUMAB [Suspect]
     Indication: RHEUMATOID ARTHRITIS
     Route: 058
     Dates: start: 20080317
  13. METHOTREXATE [Concomitant]
     Route: 048
     Dates: start: 20080613

REACTIONS (1)
  - BREAST CANCER [None]
